FAERS Safety Report 21815544 (Version 1)
Quarter: 2023Q1

REPORT INFORMATION
  Report Type: Spontaneous
  Country: FR (occurrence: FR)
  Receive Date: 20230104
  Receipt Date: 20230104
  Transmission Date: 20230417
  Serious: Yes (Hospitalization, Other)
  Sender: FDA-Public Use
  Company Number: FR-AFSSAPS-RE20130484

PATIENT
  Age: 80 Year
  Sex: Female

DRUGS (6)
  1. FUROSEMIDE [Suspect]
     Active Substance: FUROSEMIDE
     Indication: Hypertension
     Dosage: 40 MILLIGRAM
     Route: 048
  2. FUROSEMIDE [Suspect]
     Active Substance: FUROSEMIDE
     Dosage: 20 MILLIGRAM
     Route: 065
     Dates: end: 20130522
  3. BISOPROLOL FUMARATE [Suspect]
     Active Substance: BISOPROLOL FUMARATE
     Indication: Hypertension
     Dosage: 1 DOSAGE FORM
     Route: 048
     Dates: end: 20130504
  4. CORDARONE [Suspect]
     Active Substance: AMIODARONE HYDROCHLORIDE
     Indication: Arrhythmia
     Dosage: UNK
     Route: 048
     Dates: end: 20130503
  5. KARDEGIC [Suspect]
     Active Substance: ASPIRIN DL-LYSINE
     Indication: Product used for unknown indication
     Dosage: 1 DOSAGE FORM
     Route: 048
  6. POTASSIUM CHLORIDE [Suspect]
     Active Substance: POTASSIUM CHLORIDE
     Indication: Hypokalaemia
     Dosage: 1 DOSAGE FORM
     Route: 048
     Dates: end: 20130522

REACTIONS (2)
  - Hepatitis [Recovered/Resolved]
  - Malaise [Recovered/Resolved]

NARRATIVE: CASE EVENT DATE: 20130502
